FAERS Safety Report 9457476 (Version 1)
Quarter: 2013Q3

REPORT INFORMATION
  Report Type: Spontaneous
  Country: US (occurrence: None)
  Receive Date: 20130812
  Receipt Date: 20130812
  Transmission Date: 20140515
  Serious: Yes (Life-Threatening, Hospitalization)
  Sender: FDA-Public Use
  Company Number: None

PATIENT
  Age: 49 Year
  Sex: Female
  Weight: 58.97 kg

DRUGS (7)
  1. XARELTO [Suspect]
     Indication: ANTICOAGULANT THERAPY
     Route: 048
     Dates: start: 20120201, end: 20130529
  2. MICROGESTIN [Concomitant]
  3. ZOLPIDEM [Concomitant]
  4. NORCO [Concomitant]
  5. SUMATRIPTAN [Concomitant]
  6. SERTRALINE [Concomitant]
  7. L-THYROXINE [Concomitant]

REACTIONS (1)
  - Subdural haematoma [None]
